FAERS Safety Report 24019369 (Version 1)
Quarter: 2024Q2

REPORT INFORMATION
  Report Type: Spontaneous
  Country: FI (occurrence: FI)
  Receive Date: 20240627
  Receipt Date: 20240627
  Transmission Date: 20240716
  Serious: Yes (Hospitalization, Other)
  Sender: FDA-Public Use
  Company Number: FI-BoehringerIngelheim-2024-BI-035933

PATIENT
  Age: 60 Year
  Sex: Male

DRUGS (2)
  1. JARDIANCE [Suspect]
     Active Substance: EMPAGLIFLOZIN
     Indication: Type 2 diabetes mellitus
     Dates: start: 2023, end: 2023
  2. Metformin (exact product name not reported) [Concomitant]
     Indication: Type 2 diabetes mellitus

REACTIONS (3)
  - Ketoacidosis [Recovered/Resolved]
  - Post procedural complication [Recovered/Resolved]
  - Abdominal operation [Recovered/Resolved]

NARRATIVE: CASE EVENT DATE: 20230101
